FAERS Safety Report 18119258 (Version 1)
Quarter: 2020Q3

REPORT INFORMATION
  Report Type: Spontaneous
  Country: US (occurrence: US)
  Receive Date: 20200806
  Receipt Date: 20200806
  Transmission Date: 20201103
  Serious: No
  Sender: FDA-Public Use
  Company Number: US-GLENMARK PHARMACEUTICALS-2020GMK047795

PATIENT

DRUGS (2)
  1. NAPROXEN TABLETS USP [Suspect]
     Active Substance: NAPROXEN
     Indication: POLYARTHRITIS
     Dosage: 500 MILLIGRAM, OD
     Route: 048
     Dates: start: 202004, end: 202006
  2. DAPSONE. [Concomitant]
     Active Substance: DAPSONE
     Indication: DERMATITIS HERPETIFORMIS
     Dosage: UNK
     Route: 065
     Dates: start: 2020

REACTIONS (1)
  - Rash [Recovered/Resolved]

NARRATIVE: CASE EVENT DATE: 202004
